FAERS Safety Report 8221131-4 (Version None)
Quarter: 2012Q1

REPORT INFORMATION
  Report Type: 
  Country: None (occurrence: None)
  Receive Date: 20120320
  Receipt Date: 20120315
  Transmission Date: 20120608
  Serious: Yes (Death, Other)
  Sender: FDA-Public Use
  Company Number: JP-BAYER-2012-008054

PATIENT
  Age: 80 Year
  Sex: Male
  Weight: 60 kg

DRUGS (11)
  1. INCHIN-KO-TO [Suspect]
     Indication: UNEVALUABLE EVENT
     Dosage: DAILY DOSE 7.5 G
     Route: 048
     Dates: start: 20111216, end: 20120121
  2. AMINOLEBAN [Concomitant]
     Indication: HEPATIC ENCEPHALOPATHY
     Dosage: DAILY DOSE 50 G
     Route: 048
     Dates: start: 20111216, end: 20120121
  3. SELBEX [Concomitant]
     Indication: PROPHYLAXIS
     Dosage: DAILY DOSE 1 G
     Route: 048
     Dates: start: 20111216, end: 20120121
  4. NEXAVAR [Suspect]
     Dosage: DAILY DOSE 800 MG
     Route: 048
     Dates: start: 20111222, end: 20111231
  5. URSO 250 [Concomitant]
     Indication: UNEVALUABLE EVENT
     Dosage: DAILY DOSE 300 MG
     Route: 048
     Dates: start: 20111216, end: 20120121
  6. NEXAVAR [Suspect]
     Dosage: DAILY DOSE 800 MG
     Route: 048
     Dates: start: 20120112, end: 20120121
  7. NEXAVAR [Suspect]
     Indication: HEPATIC NEOPLASM MALIGNANT
     Dosage: DAILY DOSE 400 MG
     Route: 048
     Dates: start: 20111216, end: 20111221
  8. DAI-KENCHU-TO [Suspect]
     Indication: GASTROINTESTINAL MOTILITY DISORDER
     Dosage: DAILY DOSE 7.5 G
     Route: 048
     Dates: start: 20111216, end: 20120121
  9. LAC B [Concomitant]
     Indication: PROPHYLAXIS
     Dosage: DAILY DOSE 2 G
     Route: 048
     Dates: start: 20111216, end: 20120121
  10. ALPRAZOLAM [Concomitant]
     Indication: DEPRESSED MOOD
     Dosage: DAILY DOSE 1.2 MG
     Route: 048
     Dates: start: 20111216, end: 20120121
  11. LANSOPRAZOLE [Concomitant]
     Indication: GASTROOESOPHAGEAL REFLUX DISEASE
     Dosage: DAILY DOSE 15 MG
     Route: 048
     Dates: start: 20111216, end: 20120121

REACTIONS (7)
  - PULMONARY ALVEOLAR HAEMORRHAGE [None]
  - INTERSTITIAL LUNG DISEASE [None]
  - STRESS CARDIOMYOPATHY [None]
  - DIARRHOEA [None]
  - HAEMOPTYSIS [None]
  - PALMAR-PLANTAR ERYTHRODYSAESTHESIA SYNDROME [None]
  - HYPOXIA [None]
